FAERS Safety Report 17284088 (Version 1)
Quarter: 2020Q1

REPORT INFORMATION
  Report Type: Spontaneous
  Country: US (occurrence: US)
  Receive Date: 20200117
  Receipt Date: 20200117
  Transmission Date: 20200409
  Serious: No
  Sender: FDA-Public Use
  Company Number: US-JNJFOC-20200104039

PATIENT
  Age: 11 Month
  Sex: Male

DRUGS (1)
  1. INFANTS TYLENOL [Suspect]
     Active Substance: ACETAMINOPHEN
     Indication: PYREXIA
     Dosage: 3.75ML ONCE?LAST ADMIN DATE: 01/JAN/2020
     Route: 048
     Dates: start: 20200101

REACTIONS (1)
  - Therapeutic product effect incomplete [Unknown]
